FAERS Safety Report 24069148 (Version 2)
Quarter: 2024Q3

REPORT INFORMATION
  Report Type: Report from Study
  Country: US (occurrence: US)
  Receive Date: 20240710
  Receipt Date: 20240710
  Transmission Date: 20241017
  Serious: No
  Sender: ROCHE
  Company Number: US-ROCHE-3504060

PATIENT
  Age: 17 Year
  Sex: Female

DRUGS (1)
  1. ALECENSA [Suspect]
     Active Substance: ALECTINIB HYDROCHLORIDE
     Indication: Anaplastic large cell lymphoma T- and null-cell types
     Dosage: WITH FOOD.?TAKE 4 CAPSULES (600 MG) BY MOUTH TWICE DAILY WITH FOOD
     Route: 048
     Dates: start: 20231127

REACTIONS (2)
  - Off label use [Unknown]
  - No adverse event [Unknown]
